FAERS Safety Report 4711065-1 (Version None)
Quarter: 2005Q3

REPORT INFORMATION
  Report Type: 
  Country: None (occurrence: None)
  Receive Date: 20050708
  Receipt Date: 20050708
  Transmission Date: 20060218
  Serious: Yes (Hospitalization)
  Sender: FDA-Public Use
  Company Number: None

PATIENT
  Sex: Male
  Weight: 113.3993 kg

DRUGS (2)
  1. TOPOTECAN [Suspect]
     Indication: NEUROENDOCRINE CARCINOMA OF THE SKIN
     Dosage: 2 MG/M2 DAY 1,8,15 INTRAVENOU
     Route: 042
     Dates: start: 20050422, end: 20050506
  2. TOPOTECAN [Suspect]
     Indication: NEUROENDOCRINE CARCINOMA OF THE SKIN
     Dosage: 40 MG/M2 DAY 1 INTRAVENOU
     Route: 042
     Dates: start: 20050422, end: 20050506

REACTIONS (2)
  - DEEP VEIN THROMBOSIS [None]
  - FIBULA FRACTURE [None]
